FAERS Safety Report 10509280 (Version 1)
Quarter: 2014Q3

REPORT INFORMATION
  Report Type: Spontaneous
  Country: US (occurrence: None)
  Receive Date: 20140915
  Receipt Date: 20140915
  Transmission Date: 20150326
  Serious: Yes (Other)
  Sender: FDA-Public Use
  Company Number: 2014-US-003349

PATIENT
  Age: 46 Year
  Sex: Male

DRUGS (5)
  1. METOPROLOL (METOPROLOL TARTRATE) [Concomitant]
     Active Substance: METOPROLOL TARTRATE
  2. VENLAFAXINE (VENLAFAXINE HYDROCHLORIDE0 [Concomitant]
  3. ARMODAFINIL (ARMODAFINIL) [Concomitant]
  4. XYREM [Suspect]
     Active Substance: SODIUM OXYBATE
     Indication: CATAPLEXY
     Route: 048
     Dates: start: 200811, end: 2008
  5. XYREM [Suspect]
     Active Substance: SODIUM OXYBATE
     Indication: NARCOLEPSY
     Route: 048
     Dates: start: 200811, end: 2008

REACTIONS (1)
  - Hypertension [None]
